FAERS Safety Report 6226304-8 (Version None)
Quarter: 2009Q2

REPORT INFORMATION
  Report Type: 
  Country: None (occurrence: None)
  Receive Date: 20090612
  Receipt Date: 20090603
  Transmission Date: 20091009
  Serious: Yes (Other)
  Sender: FDA-Public Use
  Company Number: NL-JNJFOC-20090602052

PATIENT
  Sex: Female
  Weight: 75 kg

DRUGS (3)
  1. CAELYX [Suspect]
     Dosage: INFUSION RESTARTED AT LOWER RATE.
     Route: 042
  2. CAELYX [Suspect]
     Indication: OVARIAN CANCER
     Route: 042
  3. ZOFRAN [Concomitant]
     Dosage: 2MG/ML
     Route: 042

REACTIONS (4)
  - BACK PAIN [None]
  - MUSCULAR WEAKNESS [None]
  - SPEECH DISORDER [None]
  - SWOLLEN TONGUE [None]
